FAERS Safety Report 5169506-4 (Version None)
Quarter: 2006Q4

REPORT INFORMATION
  Report Type: 
  Country: None (occurrence: None)
  Receive Date: 20061211
  Receipt Date: 20061107
  Transmission Date: 20070319
  Serious: Yes (Hospitalization)
  Sender: FDA-Public Use
  Company Number: US-ALLERGAN-0607186US

PATIENT
  Age: 60 Year
  Sex: Female

DRUGS (21)
  1. BOTOX [Suspect]
     Indication: TORTICOLLIS
     Dosage: 185 IU, SINGLE
     Route: 030
     Dates: start: 20041124, end: 20041124
  2. BOTOX [Suspect]
     Dosage: 185 IU, SINGLE
     Route: 030
     Dates: start: 20060601, end: 20060601
  3. BOTOX [Suspect]
     Dosage: 200 IU, SINGLE
     Route: 030
     Dates: start: 20050818, end: 20050818
  4. BOTOX [Suspect]
     Dosage: 175 IU, SINGLE
     Route: 030
     Dates: start: 20051201, end: 20051201
  5. BOTOX [Suspect]
     Dosage: 190 IU, SINGLE
     Route: 030
     Dates: start: 20060302, end: 20060302
  6. BOTOX [Suspect]
     Dosage: 100 IU, SINGLE
     Route: 030
     Dates: start: 20060914, end: 20060914
  7. PAXIL [Concomitant]
     Indication: DRUG USE FOR UNKNOWN INDICATION
     Dosage: 25 MG, UNK
     Route: 048
  8. ZANAFLEX [Concomitant]
     Indication: DRUG USE FOR UNKNOWN INDICATION
     Dosage: 8 MG, UNKNOWN
     Route: 048
  9. TOPAMAX [Concomitant]
     Indication: DRUG USE FOR UNKNOWN INDICATION
     Route: 048
  10. DEMADEX [Concomitant]
     Indication: DRUG USE FOR UNKNOWN INDICATION
     Dosage: 20 MG, UNKNOWN
     Route: 048
  11. K-DUR 10 [Concomitant]
     Indication: DRUG USE FOR UNKNOWN INDICATION
     Dosage: UNK, UNKNOWN
     Route: 048
  12. COZAAR [Concomitant]
     Indication: DRUG USE FOR UNKNOWN INDICATION
     Dosage: 25 MG, UNKNOWN
     Route: 048
  13. ACTONEL [Concomitant]
     Indication: DRUG USE FOR UNKNOWN INDICATION
     Dosage: UNK, UNKNOWN
     Route: 048
  14. VAGIFEM [Concomitant]
     Dosage: UNK, BI-WEEKLY
     Route: 067
  15. LEVOXYL [Concomitant]
     Indication: DRUG USE FOR UNKNOWN INDICATION
     Dosage: UNK, UNKNOWN
  16. PREVACID [Concomitant]
     Indication: DRUG USE FOR UNKNOWN INDICATION
     Dosage: UNK, UNKNOWN
     Route: 048
  17. TRICOR /00499301/ [Concomitant]
     Indication: DRUG USE FOR UNKNOWN INDICATION
     Dosage: UNK, UNKNOWN
  18. CLONIDINE [Concomitant]
     Indication: DRUG USE FOR UNKNOWN INDICATION
     Route: 050
  19. MORPHINE SULFATE [Concomitant]
     Indication: COMPLEX REGIONAL PAIN SYNDROME
     Route: 042
  20. XANAX [Concomitant]
     Indication: DRUG USE FOR UNKNOWN INDICATION
     Route: 048
  21. NASONEX [Concomitant]
     Indication: DRUG USE FOR UNKNOWN INDICATION
     Route: 045

REACTIONS (6)
  - ASTHENIA [None]
  - DYSPNOEA [None]
  - FATIGUE [None]
  - INFLUENZA LIKE ILLNESS [None]
  - OXYGEN SATURATION DECREASED [None]
  - VASOCONSTRICTION [None]
